FAERS Safety Report 8860737 (Version 1)
Quarter: 2012Q4

REPORT INFORMATION
  Report Type: 
  Country: US (occurrence: US)
  Receive Date: 20121025
  Receipt Date: 20121025
  Transmission Date: 20130627
  Serious: Yes (Other)
  Sender: FDA-Public Use
  Company Number: CHPA2012US022282

PATIENT
  Sex: Female

DRUGS (2)
  1. VOLTAREN GEL [Suspect]
     Dosage: a little on my knee and ankle
     Route: 061
     Dates: start: 201106
  2. VALIUM [Concomitant]
     Dosage: 5mg

REACTIONS (4)
  - Emphysema [Recovered/Resolved]
  - Tremor [Recovered/Resolved]
  - Off label use [Unknown]
  - Wrong technique in drug usage process [Unknown]
